FAERS Safety Report 8155219-3 (Version None)
Quarter: 2012Q1

REPORT INFORMATION
  Report Type: 
  Country: None (occurrence: None)
  Receive Date: 20120222
  Receipt Date: 20120213
  Transmission Date: 20120608
  Serious: Yes (Hospitalization)
  Sender: FDA-Public Use
  Company Number: US-BIOGENIDEC-2012BI004532

PATIENT
  Age: 27 Year
  Sex: Female

DRUGS (1)
  1. TYSABRI [Suspect]
     Indication: MULTIPLE SCLEROSIS
     Route: 042
     Dates: start: 20080324

REACTIONS (5)
  - PARAESTHESIA [None]
  - GAIT DISTURBANCE [None]
  - HYPOAESTHESIA [None]
  - GENERAL SYMPTOM [None]
  - URINARY TRACT INFECTION [None]
